FAERS Safety Report 7527639-9 (Version None)
Quarter: 2011Q2

REPORT INFORMATION
  Report Type: 
  Country: None (occurrence: None)
  Receive Date: 20110527
  Receipt Date: 20110518
  Transmission Date: 20111010
  Serious: Yes (Other)
  Sender: FDA-Public Use
  Company Number: CIP11001241

PATIENT
  Age: 58 Year
  Sex: Female

DRUGS (2)
  1. ALENDRONATE SODIUM [Suspect]
     Indication: OSTEOPENIA
     Dosage: UNKNOWN, ORAL
     Route: 048
  2. RISEDRONATE SODIUM [Suspect]
     Indication: OSTEOPENIA
     Dosage: ORAL
     Route: 048

REACTIONS (2)
  - PATHOLOGICAL FRACTURE [None]
  - FEMUR FRACTURE [None]
